FAERS Safety Report 10049477 (Version 3)
Quarter: 2017Q3

REPORT INFORMATION
  Report Type: Spontaneous
  Country: FR (occurrence: FR)
  Receive Date: 20140401
  Receipt Date: 20170821
  Transmission Date: 20171127
  Serious: Yes (Hospitalization)
  Sender: FDA-Public Use
  Company Number: FR-ROCHE-1370801

PATIENT
  Age: 55 Year
  Sex: Female

DRUGS (3)
  1. OFLOXACIN. [Suspect]
     Active Substance: OFLOXACIN
     Indication: INFECTION PROPHYLAXIS
     Route: 065
  2. ROCEPHINE [Suspect]
     Active Substance: CEFTRIAXONE SODIUM
     Indication: POSTOPERATIVE WOUND INFECTION
     Route: 042
     Dates: start: 20140211
  3. FLAGYL [Suspect]
     Active Substance: METRONIDAZOLE\METRONIDAZOLE HYDROCHLORIDE
     Indication: POSTOPERATIVE WOUND INFECTION
     Route: 048
     Dates: start: 20140211

REACTIONS (1)
  - Coagulation factor deficiency [Recovered/Resolved]

NARRATIVE: CASE EVENT DATE: 20140211
